FAERS Safety Report 6889725-6 (Version None)
Quarter: 2010Q3

REPORT INFORMATION
  Report Type: 
  Country: None (occurrence: None)
  Receive Date: 20100730
  Receipt Date: 20080411
  Transmission Date: 20110219
  Serious: No
  Sender: FDA-Public Use
  Company Number: US-PFIZER INC-2008032571

PATIENT
  Sex: Male
  Weight: 96.62 kg

DRUGS (4)
  1. LIPITOR [Suspect]
     Indication: BLOOD CHOLESTEROL INCREASED
     Dates: start: 20050101
  2. GALENIC /BENAZEPRIL/HYDROCHLOROTHIAZIDE/ [Concomitant]
     Indication: HYPERTENSION
  3. ACETYLSALICYLIC ACID SRT [Concomitant]
  4. AVODART [Concomitant]

REACTIONS (1)
  - BLOOD CREATINE PHOSPHOKINASE INCREASED [None]
